FAERS Safety Report 4750595-3 (Version None)
Quarter: 2005Q3

REPORT INFORMATION
  Report Type: 
  Country: None (occurrence: None)
  Receive Date: 20050823
  Receipt Date: 20050812
  Transmission Date: 20060218
  Serious: Yes (Hospitalization)
  Sender: FDA-Public Use
  Company Number: FR-ROCHE-413947

PATIENT
  Age: 86 Year
  Sex: Female

DRUGS (2)
  1. ROCEPHIN [Suspect]
     Indication: DRUG USE FOR UNKNOWN INDICATION
     Route: 042
     Dates: end: 20050614
  2. OFLOCET [Suspect]
     Indication: DRUG USE FOR UNKNOWN INDICATION
     Route: 042
     Dates: end: 20050614

REACTIONS (5)
  - COMA [None]
  - DRUG LEVEL INCREASED [None]
  - MYOCLONUS [None]
  - OVERDOSE [None]
  - RENAL FAILURE CHRONIC [None]
